FAERS Safety Report 6620639-2 (Version None)
Quarter: 2010Q1

REPORT INFORMATION
  Report Type: 
  Country: None (occurrence: None)
  Receive Date: 20100223
  Receipt Date: 20091009
  Transmission Date: 20100710
  Serious: No
  Sender: FDA-Public Use
  Company Number: 004360

PATIENT
  Age: 51 Year
  Sex: Female

DRUGS (1)
  1. CIMZIA [Suspect]
     Dosage: (400MG SUBCUTANEOUS)
     Route: 058
     Dates: start: 20090814

REACTIONS (3)
  - ABDOMINAL DISTENSION [None]
  - FREQUENT BOWEL MOVEMENTS [None]
  - PAIN [None]
